FAERS Safety Report 9231744 (Version 1)
Quarter: 2013Q2

REPORT INFORMATION
  Report Type: Spontaneous
  Country: IT (occurrence: IT)
  Receive Date: 20130415
  Receipt Date: 20130415
  Transmission Date: 20140414
  Serious: Yes (Hospitalization)
  Sender: FDA-Public Use
  Company Number: IT-TEVA-397586ISR

PATIENT
  Age: 20 Year
  Sex: Male

DRUGS (2)
  1. AMOXICILLIN [Suspect]
     Indication: MYOPERICARDITIS
  2. ASPIRIN [Suspect]
     Dosage: 1000 MILLIGRAM DAILY;

REACTIONS (2)
  - Rash maculo-papular [Recovered/Resolved]
  - Infectious mononucleosis [Recovered/Resolved]
